FAERS Safety Report 8121040-5 (Version None)
Quarter: 2012Q1

REPORT INFORMATION
  Report Type: 
  Country: None (occurrence: None)
  Receive Date: 20120208
  Receipt Date: 20120127
  Transmission Date: 20120608
  Serious: Yes (Hospitalization, Other)
  Sender: FDA-Public Use
  Company Number: CA-JNJFOC-20120201485

PATIENT
  Sex: Female
  Weight: 52 kg

DRUGS (1)
  1. REMICADE [Suspect]
     Indication: PRODUCT USED FOR UNKNOWN INDICATION
     Route: 042
     Dates: start: 20111018

REACTIONS (2)
  - HAEMOGLOBIN DECREASED [None]
  - HAEMORRHAGE [None]
